FAERS Safety Report 19299003 (Version 5)
Quarter: 2021Q3

REPORT INFORMATION
  Report Type: Report from Study
  Country: US (occurrence: US)
  Receive Date: 20210525
  Receipt Date: 20210726
  Transmission Date: 20211014
  Serious: Yes (Hospitalization)
  Sender: FDA-Public Use
  Company Number: US-ROCHE-2795810

PATIENT
  Age: 70 Year
  Sex: Male
  Weight: 74.5 kg

DRUGS (33)
  1. SARNA [CAMPHOR;MENTHOL] [Concomitant]
     Indication: RASH
     Dosage: 0.5?0.5% LOTION
     Route: 061
     Dates: start: 20210319, end: 20210321
  2. NITROSTAT [Concomitant]
     Active Substance: NITROGLYCERIN
     Indication: CHEST PAIN
     Dates: start: 20190415
  3. RITUXIMAB. [Suspect]
     Active Substance: RITUXIMAB
     Indication: MANTLE CELL LYMPHOMA
     Dosage: ON 10/MAR/2021, HE RECEIVED THE MOST RECENT DOSE OF RITUXIMAB PRIOR TO SAE.?ON 05/MAY/2021, HE RECEI
     Route: 042
     Dates: start: 20210310
  4. DIPHENHYDRAMINE. [Concomitant]
     Active Substance: DIPHENHYDRAMINE
     Indication: RASH
     Route: 048
     Dates: start: 20210318, end: 20210322
  5. CIPROFLOXACIN. [Concomitant]
     Active Substance: CIPROFLOXACIN
     Indication: RASH
     Route: 048
     Dates: start: 20210318, end: 20210320
  6. PERI?COLACE [Concomitant]
     Active Substance: CASANTHRANOL\DOCUSATE SODIUM
     Indication: CONSTIPATION
     Dosage: 1 TABLET
     Route: 048
     Dates: start: 20210309, end: 20210506
  7. NEULASTA [Concomitant]
     Active Substance: PEGFILGRASTIM
  8. CEFEPIME [Concomitant]
     Active Substance: CEFEPIME HYDROCHLORIDE
     Indication: PYREXIA
  9. TRIAMCINOLONE [Concomitant]
     Active Substance: TRIAMCINOLONE
     Indication: RASH
     Route: 061
     Dates: start: 20210318
  10. POLYETHYLENE GLYCOL [Concomitant]
     Active Substance: POLYETHYLENE GLYCOLS
     Indication: CONSTIPATION
     Route: 048
     Dates: start: 20210321, end: 20210322
  11. DILAUDID [Concomitant]
     Active Substance: HYDROMORPHONE HYDROCHLORIDE
  12. ZOFRAN [Concomitant]
     Active Substance: ONDANSETRON HYDROCHLORIDE
     Indication: NAUSEA
     Route: 048
     Dates: start: 20210301
  13. HYDROMORPHONE [Concomitant]
     Active Substance: HYDROMORPHONE
     Indication: RASH
     Dosage: 0.2?2 MG
     Route: 042
     Dates: start: 20210319, end: 20210321
  14. OXYCODONE [Concomitant]
     Active Substance: OXYCODONE
     Indication: RASH
     Route: 048
     Dates: start: 20210318
  15. GABAPENTIN. [Concomitant]
     Active Substance: GABAPENTIN
     Indication: RASH
     Route: 048
     Dates: start: 20210319
  16. ZOVIRAX [Concomitant]
     Active Substance: ACYCLOVIR
     Dates: start: 20210310
  17. LIPITOR [Concomitant]
     Active Substance: ATORVASTATIN CALCIUM
     Route: 048
     Dates: start: 20200728
  18. ACETAMINOPHEN. [Concomitant]
     Active Substance: ACETAMINOPHEN
     Indication: RASH
     Route: 048
     Dates: start: 20210318
  19. CEFEPIME [Concomitant]
     Active Substance: CEFEPIME HYDROCHLORIDE
     Indication: RASH
     Route: 042
     Dates: start: 20210318
  20. PREDNISONE. [Concomitant]
     Active Substance: PREDNISONE
     Indication: RASH
     Dosage: ONGOING AT DISCHARGE
     Route: 048
     Dates: start: 20210318
  21. PROCHLORPERAZINE. [Concomitant]
     Active Substance: PROCHLORPERAZINE
     Indication: NAUSEA
     Route: 048
     Dates: start: 20210302
  22. OXYCONTIN [Concomitant]
     Active Substance: OXYCODONE HYDROCHLORIDE
     Indication: CANCER PAIN
     Route: 048
     Dates: start: 20191020
  23. VENETOCLAX. [Suspect]
     Active Substance: VENETOCLAX
     Indication: MANTLE CELL LYMPHOMA
     Dosage: ON 17/MAR/2021, HE RECEIVED THE MOST RECENT DOSE OF VENETOCLAX PRIOR TO SAE.?STEP UP DOSING 20/50 MG
     Route: 048
     Dates: start: 20210310
  24. VENETOCLAX. [Suspect]
     Active Substance: VENETOCLAX
     Route: 048
     Dates: start: 20210602
  25. BENDAMUSTINE [Suspect]
     Active Substance: BENDAMUSTINE
     Indication: MANTLE CELL LYMPHOMA
     Dosage: ON 11/MAR/2021, HE RECEIVED THE MOST RECENT DOSE OF BENDAMUSTIN PRIOR TO SAE.?ON 06/MAY/2021, HE REC
     Route: 042
     Dates: start: 20210310
  26. AMITRIPTYLINE [Concomitant]
     Active Substance: AMITRIPTYLINE
     Indication: ANXIETY
     Route: 048
     Dates: start: 20201013
  27. ELIQUIS [Concomitant]
     Active Substance: APIXABAN
     Indication: ATRIAL FIBRILLATION
     Route: 048
     Dates: start: 20190109, end: 20210510
  28. AVAPRO [Concomitant]
     Active Substance: IRBESARTAN
     Indication: HYPERTENSION
     Route: 048
     Dates: start: 20201119
  29. TAPAZOLE [Concomitant]
     Active Substance: METHIMAZOLE
     Indication: HYPERTHYROIDISM
     Route: 048
     Dates: start: 20200213
  30. FLOMAX [Concomitant]
     Active Substance: TAMSULOSIN HYDROCHLORIDE
     Indication: BENIGN PROSTATIC HYPERPLASIA
     Route: 048
     Dates: start: 20201008, end: 20210505
  31. ZYLOPRIM [Concomitant]
     Active Substance: ALLOPURINOL
     Route: 048
     Dates: start: 20210302, end: 20210318
  32. PROTONIX [Concomitant]
     Active Substance: PANTOPRAZOLE SODIUM
     Indication: DYSPEPSIA
     Route: 048
     Dates: start: 20210221, end: 20210401
  33. RAMELTEON [Concomitant]
     Active Substance: RAMELTEON
     Indication: RASH
     Route: 048

REACTIONS (3)
  - Proctitis [Recovered/Resolved]
  - Rash maculo-papular [Recovered/Resolved]
  - Clostridium difficile colitis [Recovered/Resolved]

NARRATIVE: CASE EVENT DATE: 20210318
